FAERS Safety Report 8716234 (Version 2)
Quarter: 2013Q4

REPORT INFORMATION
  Report Type: Report from Study
  Country: BE (occurrence: BE)
  Receive Date: 20120810
  Receipt Date: 20131105
  Transmission Date: 20140711
  Serious: Yes (Other)
  Sender: FDA-Public Use
  Company Number: BE-MERCK-1208BEL000322

PATIENT
  Age: 58 Year
  Sex: Male
  Weight: 78 kg

DRUGS (1)
  1. TEMOZOLOMIDE [Suspect]
     Dosage: 75 MG/M2, QD, X2 DAY
     Dates: start: 200602, end: 200702

REACTIONS (1)
  - Non-Hodgkin^s lymphoma [Recovered/Resolved]
